FAERS Safety Report 10258526 (Version 1)
Quarter: 2014Q2

REPORT INFORMATION
  Report Type: Spontaneous
  Country: US (occurrence: None)
  Receive Date: 20140624
  Receipt Date: 20140624
  Transmission Date: 20141212
  Serious: Yes (Hospitalization)
  Sender: FDA-Public Use
  Company Number: None

PATIENT
  Age: 66 Year
  Sex: Male
  Weight: 86.4 kg

DRUGS (1)
  1. CISPLATIN [Suspect]

REACTIONS (10)
  - Abdominal pain [None]
  - Nausea [None]
  - Renal failure acute [None]
  - Pyrexia [None]
  - Radiation mucositis [None]
  - Muscular weakness [None]
  - Fatigue [None]
  - Neutropenia [None]
  - Hypokalaemia [None]
  - Hypernatraemia [None]
